FAERS Safety Report 16012616 (Version 1)
Quarter: 2019Q1

REPORT INFORMATION
  Report Type: Spontaneous
  Country: AU (occurrence: AU)
  Receive Date: 20190227
  Receipt Date: 20190227
  Transmission Date: 20190418
  Serious: Yes (Other)
  Sender: FDA-Public Use
  Company Number: AU-MYLANLABS-2019M1017909

PATIENT
  Sex: Male

DRUGS (1)
  1. CLOZARIL [Suspect]
     Active Substance: CLOZAPINE
     Indication: SCHIZOPHRENIA
     Dosage: 275 MILLIGRAM
     Route: 048
     Dates: start: 20190118

REACTIONS (5)
  - Troponin increased [Unknown]
  - Upper respiratory tract infection [Unknown]
  - Tachycardia [Unknown]
  - C-reactive protein increased [Unknown]
  - Chest pain [Unknown]

NARRATIVE: CASE EVENT DATE: 2019
